FAERS Safety Report 21433216 (Version 1)
Quarter: 2022Q4

REPORT INFORMATION
  Report Type: Spontaneous
  Country: US (occurrence: US)
  Receive Date: 20221010
  Receipt Date: 20221010
  Transmission Date: 20230113
  Serious: No
  Sender: FDA-Public Use
  Company Number: US-PURDUE PHARMA-USA-2021-0282681

PATIENT
  Sex: Female

DRUGS (1)
  1. DILAUDID [Suspect]
     Active Substance: HYDROMORPHONE HYDROCHLORIDE
     Indication: Migraine
     Dosage: UNK UNK, TWICE
     Route: 048
     Dates: start: 20210731

REACTIONS (3)
  - Hyperventilation [Unknown]
  - Dyspnoea [Unknown]
  - Vomiting [Unknown]
